FAERS Safety Report 4851247-1 (Version None)
Quarter: 2005Q4

REPORT INFORMATION
  Report Type: 
  Country: None (occurrence: None)
  Receive Date: 20051208
  Receipt Date: 20051130
  Transmission Date: 20060501
  Serious: Yes (Other)
  Sender: FDA-Public Use
  Company Number: 2005BI011616

PATIENT
  Age: 63 Year
  Sex: Male

DRUGS (5)
  1. AVONEX [Suspect]
     Indication: SECONDARY PROGRESSIVE MULTIPLE SCLEROSIS
     Dosage: IM
     Route: 030
  2. BETASERON [Concomitant]
  3. REBIF [Concomitant]
  4. BACLOFEN [Concomitant]
  5. NEURONTIN [Concomitant]

REACTIONS (1)
  - PROSTATE CANCER [None]
